FAERS Safety Report 21580356 (Version 1)
Quarter: 2022Q4

REPORT INFORMATION
  Report Type: Other
  Country: CA (occurrence: CA)
  Receive Date: 20221110
  Receipt Date: 20221110
  Transmission Date: 20230113
  Serious: Yes (Other)
  Sender: FDA-Public Use
  Company Number: CA-CELLTRION INC.-2022CA018518

PATIENT

DRUGS (1)
  1. RITUXIMAB [Suspect]
     Active Substance: RITUXIMAB
     Indication: Relapsing-remitting multiple sclerosis
     Dosage: 500.0 MILLIGRAM, 1 EVERY 6 MONTHS
     Route: 065

REACTIONS (3)
  - Disease recurrence [Unknown]
  - Off label use [Unknown]
  - Off label use [Unknown]
